FAERS Safety Report 9069493 (Version 1)
Quarter: 2013Q1

REPORT INFORMATION
  Report Type: Report from Study
  Country: US (occurrence: US)
  Receive Date: 20130131
  Receipt Date: 20130131
  Transmission Date: 20140127
  Serious: No
  Sender: FDA-Public Use
  Company Number: US-ABBOTT-12P-163-0986349-00

PATIENT
  Age: 68 Year
  Sex: Male

DRUGS (12)
  1. HUMIRA [Suspect]
     Indication: CROHN^S DISEASE
     Route: 058
     Dates: start: 20120815
  2. ENTOCORT [Concomitant]
     Indication: CROHN^S DISEASE
     Dosage: 3 PILLS DAILY
  3. AZATHIOPRINE [Concomitant]
     Indication: CROHN^S DISEASE
     Dosage: 50MG  2 TABLETS DAILY
  4. AMLODIPINE [Concomitant]
     Indication: BLOOD PRESSURE
     Dosage: 5MG DAILY
  5. IRON PILL [Concomitant]
     Indication: PRODUCT USED FOR UNKNOWN INDICATION
     Dosage: 1 PILL DAILY
  6. ST JOSEPH BABY ASPIRIN [Concomitant]
     Indication: PRODUCT USED FOR UNKNOWN INDICATION
     Dosage: BECAUSE THEY TOLD  HIM TO
  7. FAMOTIDINE [Concomitant]
     Indication: GASTROOESOPHAGEAL REFLUX DISEASE
     Dosage: 20MG DAILY
  8. LISINOPRIL/HCTZ [Concomitant]
     Indication: BLOOD PRESSURE
     Dosage: 20/25MG TABLET DAILY
  9. LANTUS SOLAR PEN [Concomitant]
     Indication: DIABETES MELLITUS
     Dosage: DAILY AT NIGHT 22 UNITS
  10. APIDRA INJECTION UNITS [Concomitant]
     Indication: BLOOD GLUCOSE INCREASED
  11. ORAL SUSPENSION CHOLESTYRAMINE [Concomitant]
     Indication: BOWEL MOVEMENT IRREGULARITY
     Dosage: WHEN TAKING LONG CAR OR PLANE RIDE
  12. FISH OIL [Concomitant]
     Indication: VITAMIN SUPPLEMENTATION
     Dosage: OVER THE COUNTER DAILY

REACTIONS (5)
  - Incorrect dose administered [Not Recovered/Not Resolved]
  - Diarrhoea [Not Recovered/Not Resolved]
  - Injection site pain [Not Recovered/Not Resolved]
  - Insomnia [Not Recovered/Not Resolved]
  - Constipation [Not Recovered/Not Resolved]
